FAERS Safety Report 22000722 (Version 1)
Quarter: 2023Q1

REPORT INFORMATION
  Report Type: Spontaneous
  Country: US (occurrence: US)
  Receive Date: 20230216
  Receipt Date: 20230216
  Transmission Date: 20230418
  Serious: Yes (Hospitalization, Other)
  Sender: FDA-Public Use
  Company Number: US-MYLANLABS-2023M1016791

PATIENT
  Age: 81 Year
  Sex: Female

DRUGS (3)
  1. QUETIAPINE [Suspect]
     Active Substance: QUETIAPINE
     Indication: Major depression
     Dosage: 50 MILLIGRAM, QD
     Route: 065
  2. QUETIAPINE [Suspect]
     Active Substance: QUETIAPINE
     Dosage: 200 MILLIGRAM, QD
     Route: 065
  3. DULOXETINE [Suspect]
     Active Substance: DULOXETINE
     Indication: Major depression
     Dosage: 20 MILLIGRAM, QD
     Route: 065

REACTIONS (2)
  - Drug ineffective [Unknown]
  - Orthostatic hypotension [Unknown]
